FAERS Safety Report 5617278-9 (Version None)
Quarter: 2008Q1

REPORT INFORMATION
  Report Type: 
  Country: None (occurrence: None)
  Receive Date: 20080207
  Receipt Date: 20070702
  Transmission Date: 20080703
  Serious: No
  Sender: FDA-Public Use
  Company Number: A0661294A

PATIENT
  Age: 53 Year
  Sex: Male

DRUGS (4)
  1. PAXIL [Suspect]
     Indication: DEPRESSION
     Dosage: 10MG PER DAY
     Route: 048
     Dates: start: 20070602
  2. LUNESTA [Suspect]
  3. LUNESTA [Concomitant]
  4. ADVIL [Concomitant]

REACTIONS (2)
  - ABDOMINAL DISTENSION [None]
  - TEMPERATURE INTOLERANCE [None]
